FAERS Safety Report 9516420 (Version 1)
Quarter: 2013Q3

REPORT INFORMATION
  Report Type: Spontaneous
  Country: FR (occurrence: None)
  Receive Date: 20130909
  Receipt Date: 20130909
  Transmission Date: 20140515
  Serious: Yes (Hospitalization)
  Sender: FDA-Public Use
  Company Number: AUR-APL-2013-07374

PATIENT
  Age: 83 Year
  Sex: Male

DRUGS (10)
  1. RAMIPRIL (RAMIPRIL) [Suspect]
     Indication: HYPERTENSION
     Dosage: (2 DOSAGE FORMS, 1 D), ORAL
     Dates: start: 20130128
  2. MYTELASE [Suspect]
     Indication: PRODUCT USED FOR UNKNOWN INDICATION
     Dosage: 3 DOSAGE FORMS (1 DOSAGE FORMS, 3 IN 1 D), ORAL
     Dates: end: 20130125
  3. ESIDREX [Suspect]
     Indication: HYPERTENSION
     Route: 048
     Dates: end: 20130128
  4. TEGELINE [Suspect]
     Indication: PRODUCT USED FOR UNKNOWN INDICATION
     Route: 042
     Dates: start: 20130126, end: 20130128
  5. LOXEN(NICARDIPINE HYDROCHLORIDE) [Concomitant]
  6. KARDEGIC(ACETYLSALICYLATE LYSINE) [Concomitant]
  7. PREDNISONE(PREDNISONE) [Concomitant]
  8. EUPRESSYL(URAPIDIL) [Concomitant]
  9. IMUREL(AZATHIOPRINE) [Concomitant]
  10. FENOFIBRATE [Suspect]

REACTIONS (4)
  - Renal failure acute [None]
  - Muscle spasms [None]
  - Diarrhoea [None]
  - Continuous haemodiafiltration [None]
